FAERS Safety Report 8426271-2 (Version None)
Quarter: 2012Q2

REPORT INFORMATION
  Report Type: 
  Country: None (occurrence: None)
  Receive Date: 20120323
  Receipt Date: 20110425
  Transmission Date: 20120825
  Serious: Yes (Hospitalization, Other)
  Sender: FDA-Public Use
  Company Number: 163-21880-11043247

PATIENT
  Age: 56 Year
  Sex: Female
  Weight: 90.7194 kg

DRUGS (13)
  1. DEXAMETHASONE [Concomitant]
  2. TOPROL-XL [Concomitant]
  3. HYDROCODONE BITARTRATE [Concomitant]
  4. HYDROCHLOROTHIAZIDE [Concomitant]
  5. IMMODIUM (LOPERAMIDE) [Concomitant]
  6. COUMADIN [Concomitant]
  7. MICRO-K (POTASSIUM CHLORIDE) [Concomitant]
  8. AMLODIPINE [Concomitant]
  9. REVLIMID [Suspect]
     Indication: MULTIPLE MYELOMA
     Dosage: 25 MG, DAILY X 21 DAYS, 7 DAYS OFF, PO
     Route: 048
     Dates: start: 20101201
  10. PEPCID [Concomitant]
  11. LEXAPRO [Concomitant]
  12. LORAZEPAM [Concomitant]
  13. FOLIC ACID [Concomitant]

REACTIONS (1)
  - PNEUMONIA [None]
